FAERS Safety Report 6072851-1 (Version None)
Quarter: 2009Q1

REPORT INFORMATION
  Report Type: 
  Country: None (occurrence: None)
  Receive Date: 20090205
  Receipt Date: 20090129
  Transmission Date: 20090719
  Serious: Yes (Life-Threatening, Other)
  Sender: FDA-Public Use
  Company Number: MOZO-1000151

PATIENT
  Age: 17 Year
  Sex: Male
  Weight: 88 kg

DRUGS (7)
  1. MOZOBIL [Suspect]
     Indication: HAEMATOPOIETIC STEM CELL MOBILISATION
     Dosage: 20 MG, QD, SUBCUTANEOUS
     Route: 058
     Dates: start: 20081026, end: 20081030
  2. THIOTEPA [Suspect]
  3. CHEMOTHERAPEUTICS NOS [Concomitant]
  4. BACTRIM [Concomitant]
  5. CLONAZEPAM [Concomitant]
  6. AMITRIPTYLINE HCL [Concomitant]
  7. LYRICA [Concomitant]

REACTIONS (4)
  - BONE MARROW FAILURE [None]
  - CYSTITIS HAEMORRHAGIC [None]
  - ENGRAFT FAILURE [None]
  - THROMBOCYTOPENIA [None]
